FAERS Safety Report 4297243-7 (Version None)
Quarter: 2004Q1

REPORT INFORMATION
  Report Type: 
  Country: None (occurrence: None)
  Receive Date: 20040213
  Receipt Date: 20040128
  Transmission Date: 20041129
  Serious: Yes (Hospitalization)
  Sender: FDA-Public Use
  Company Number: 8005077

PATIENT
  Age: 18 Year
  Sex: Female

DRUGS (4)
  1. KEPPRA [Suspect]
     Indication: CONVULSION
     Dosage: 250 MG2/D PO
     Route: 048
     Dates: start: 20031226, end: 20040108
  2. KEPPRA [Suspect]
     Indication: CONVULSION
     Dosage: 500 MG 2/D PO
     Route: 048
     Dates: start: 20040109, end: 20040124
  3. KEPPRA [Suspect]
     Indication: CONVULSION
     Dosage: 750 MG PO
     Route: 048
     Dates: start: 20040125
  4. KLONOPIN [Concomitant]

REACTIONS (5)
  - GRAND MAL CONVULSION [None]
  - HEADACHE [None]
  - INFLUENZA LIKE ILLNESS [None]
  - SOMNOLENCE [None]
  - STATUS EPILEPTICUS [None]
